FAERS Safety Report 14896649 (Version 44)
Quarter: 2023Q4

REPORT INFORMATION
  Report Type: Spontaneous
  Country: FR (occurrence: FR)
  Receive Date: 20180515
  Receipt Date: 20231025
  Transmission Date: 20240109
  Serious: Yes (Other)
  Sender: FDA-Public Use
  Company Number: FR-UCBSA-2018013909

PATIENT
  Age: 1 Day
  Sex: Male
  Weight: 1.89 kg

DRUGS (99)
  1. RAMIPRIL [Suspect]
     Active Substance: RAMIPRIL
     Indication: Hypertension
     Dosage: 2.5 MG, 1X/DAY (2.5 MG, QD, 21 WEEKS 1 DAY)
     Route: 064
     Dates: start: 20160930, end: 20170224
  2. RAMIPRIL [Suspect]
     Active Substance: RAMIPRIL
     Dosage: 2.5 MG, QD
     Route: 064
     Dates: start: 20170224
  3. METFORMIN HYDROCHLORIDE [Suspect]
     Active Substance: METFORMIN HYDROCHLORIDE
     Indication: Type 2 diabetes mellitus
     Dosage: 1700 MG, 1X/DAY (1700 MG, QD)
     Route: 064
     Dates: start: 20160930, end: 20170224
  4. METFORMIN HYDROCHLORIDE [Suspect]
     Active Substance: METFORMIN HYDROCHLORIDE
     Dosage: 850 MG, QD
     Route: 064
     Dates: start: 20170224
  5. METFORMIN HYDROCHLORIDE [Suspect]
     Active Substance: METFORMIN HYDROCHLORIDE
     Dosage: 1700 MG, DAILY
     Route: 064
     Dates: start: 20170804
  6. METFORMIN HYDROCHLORIDE [Suspect]
     Active Substance: METFORMIN HYDROCHLORIDE
     Dosage: 850 MG, DAILY
     Route: 064
     Dates: start: 20160930, end: 20170224
  7. LEUCOVORIN CALCIUM [Suspect]
     Active Substance: LEUCOVORIN CALCIUM
     Indication: Normochromic normocytic anaemia
     Dosage: 5 MG, 1X/DAY (5 MG, QD)
     Route: 064
     Dates: start: 20170224, end: 20170313
  8. LEUCOVORIN CALCIUM [Suspect]
     Active Substance: LEUCOVORIN CALCIUM
     Dosage: UNK
     Route: 064
  9. LEUCOVORIN CALCIUM [Suspect]
     Active Substance: LEUCOVORIN CALCIUM
     Dosage: UNK
     Route: 064
  10. LEUCOVORIN CALCIUM [Suspect]
     Active Substance: LEUCOVORIN CALCIUM
     Dosage: 5 MG, DAILY
     Route: 064
     Dates: start: 20170224, end: 20170313
  11. LEUCOVORIN CALCIUM [Suspect]
     Active Substance: LEUCOVORIN CALCIUM
     Dosage: 5 MG, DAILY
     Route: 064
     Dates: start: 20170313
  12. LEUCOVORIN CALCIUM [Suspect]
     Active Substance: LEUCOVORIN CALCIUM
     Dosage: 5 MG, DAILY (5 MG, QD)
     Route: 064
     Dates: start: 20170224, end: 20170914
  13. GABAPENTIN [Suspect]
     Active Substance: GABAPENTIN
     Indication: Diabetic neuropathy
     Dosage: 800 MG, 1X/DAY (800 MG, QD)
     Route: 064
     Dates: start: 20160930
  14. GABAPENTIN [Suspect]
     Active Substance: GABAPENTIN
     Dosage: 400 MG, QD
     Route: 064
     Dates: start: 20160930
  15. GABAPENTIN [Suspect]
     Active Substance: GABAPENTIN
     Dosage: UNK
     Route: 064
  16. GABAPENTIN [Suspect]
     Active Substance: GABAPENTIN
     Dosage: 80 MG, QD
     Route: 064
     Dates: start: 20160930
  17. GABAPENTIN [Suspect]
     Active Substance: GABAPENTIN
     Indication: Diabetic neuropathy
     Dosage: 400 MG, 1X/DAY
     Route: 064
     Dates: start: 20160930
  18. METHYLDOPA [Suspect]
     Active Substance: METHYLDOPA
     Indication: Hypertension
     Dosage: 1500 MG, 1X/DAY (1500 MG, QD)
     Route: 064
     Dates: start: 20170720
  19. METHYLDOPA [Suspect]
     Active Substance: METHYLDOPA
     Indication: Hypertension
     Dosage: 1500 MG, 1X/DAY (1500 MG, QD)
     Route: 064
     Dates: start: 20170720
  20. METFORMIN HYDROCHLORIDE [Suspect]
     Active Substance: METFORMIN HYDROCHLORIDE
     Indication: Type 2 diabetes mellitus
     Dosage: 1700 MG, DAILY (1700 MG, QD)
     Route: 064
     Dates: start: 20160930, end: 20170224
  21. METFORMIN HYDROCHLORIDE [Suspect]
     Active Substance: METFORMIN HYDROCHLORIDE
     Dosage: 850 MG, 1X/DAY (850 MG, QD)
     Route: 064
     Dates: start: 20160930, end: 20170224
  22. METFORMIN HYDROCHLORIDE [Suspect]
     Active Substance: METFORMIN HYDROCHLORIDE
     Dosage: 1700 MG, DAILY
     Route: 064
     Dates: start: 20170804
  23. METFORMIN HYDROCHLORIDE [Suspect]
     Active Substance: METFORMIN HYDROCHLORIDE
     Dosage: 850 MG, DAILY (850 MG, QD)
     Route: 064
     Dates: start: 20170224
  24. INSULIN NOS [Suspect]
     Active Substance: INSULIN NOS
     Indication: Type 2 diabetes mellitus
     Dosage: UNK
     Route: 064
     Dates: start: 20160930, end: 20170224
  25. INSULIN NOS [Suspect]
     Active Substance: INSULIN NOS
     Dosage: UNK
  26. INSULIN NOS [Suspect]
     Active Substance: INSULIN NOS
     Indication: Type 2 diabetes mellitus
     Dosage: UNK
     Route: 064
     Dates: start: 20161230, end: 20170224
  27. INSULIN NOS [Suspect]
     Active Substance: INSULIN NOS
     Dosage: UNK
     Route: 064
  28. HUMALOG [Suspect]
     Active Substance: INSULIN LISPRO
     Indication: Type 2 diabetes mellitus
     Dosage: 21 UG/M2, 1X/DAY
     Route: 064
     Dates: start: 20170224, end: 20170224
  29. HUMALOG [Suspect]
     Active Substance: INSULIN LISPRO
     Dosage: 7 UG/M2, DAILY
     Route: 064
     Dates: start: 20170224
  30. LANTUS [Suspect]
     Active Substance: INSULIN GLARGINE
     Indication: Type 2 diabetes mellitus
     Dosage: 20 IU, DAILY (20 IU, QD)
     Route: 064
     Dates: start: 20170224, end: 20170914
  31. INSULIN LISPRO [Suspect]
     Active Substance: INSULIN LISPRO
     Indication: Type 2 diabetes mellitus
     Dosage: 21 UG/M2, DAILY (21 UG/M2, QD)
     Route: 064
     Dates: start: 20170224, end: 20170224
  32. INSULIN LISPRO [Suspect]
     Active Substance: INSULIN LISPRO
     Dosage: 7 UG/M2, DAILY (7 UG/M2, QD)
     Route: 064
     Dates: start: 201702, end: 201702
  33. LEVEMIR [Suspect]
     Active Substance: INSULIN DETEMIR
     Indication: Type 2 diabetes mellitus
     Dosage: 10 IU, 1X/DAY  (10 IU, QD)
     Route: 064
     Dates: start: 20160930, end: 20170224
  34. LEVEMIR [Suspect]
     Active Substance: INSULIN DETEMIR
     Dosage: 10 IU, 1X/DAY (10 IU, QD)
     Route: 064
     Dates: start: 20160930, end: 20170224
  35. NICARDIPINE HYDROCHLORIDE [Suspect]
     Active Substance: NICARDIPINE HYDROCHLORIDE
     Indication: Hypertension
     Dosage: 50 MG, UNK (50 MG, 50MG FORME LP X2/J)
     Route: 064
     Dates: start: 20170313, end: 20180405
  36. NICARDIPINE HYDROCHLORIDE [Suspect]
     Active Substance: NICARDIPINE HYDROCHLORIDE
     Dosage: UNK
     Route: 064
     Dates: start: 20170313, end: 20170405
  37. NICARDIPINE HYDROCHLORIDE [Suspect]
     Active Substance: NICARDIPINE HYDROCHLORIDE
     Dosage: 50 MG, 2X/DAY
     Route: 064
     Dates: start: 20170405, end: 20170914
  38. LABETALOL HYDROCHLORIDE [Suspect]
     Active Substance: LABETALOL HYDROCHLORIDE
     Indication: Hypertension
     Dosage: 80 MG, DAILY (80 MG, QD)
     Route: 064
     Dates: start: 20170516, end: 20170914
  39. LASIX [Suspect]
     Active Substance: FUROSEMIDE
     Indication: Hypertension
     Dosage: 50 MG, UNK
     Route: 064
     Dates: start: 201705
  40. LASIX [Suspect]
     Active Substance: FUROSEMIDE
     Dosage: 40 MG, UNK (SCORED TABLET)
     Route: 064
     Dates: start: 20170516
  41. LASIX [Suspect]
     Active Substance: FUROSEMIDE
     Dosage: UNK
     Route: 064
  42. FUROSEMIDE [Suspect]
     Active Substance: FUROSEMIDE
     Indication: Hypertension
     Dosage: 50 MG
     Route: 064
     Dates: start: 201705
  43. FUROSEMIDE [Suspect]
     Active Substance: FUROSEMIDE
     Dosage: 40 MG
     Route: 064
     Dates: start: 20170516
  44. ARIPIPRAZOLE [Suspect]
     Active Substance: ARIPIPRAZOLE
     Indication: Bipolar I disorder
     Dosage: 10 MG, DAILY
     Route: 064
     Dates: start: 20160930, end: 20170224
  45. ARIPIPRAZOLE [Suspect]
     Active Substance: ARIPIPRAZOLE
     Dosage: UNK
     Route: 064
  46. AMOXICILLIN SODIUM [Suspect]
     Active Substance: AMOXICILLIN SODIUM
     Dosage: 3 G, DAILY
     Route: 064
     Dates: start: 20170804, end: 20170804
  47. AMOXICILLIN SODIUM [Suspect]
     Active Substance: AMOXICILLIN SODIUM
     Dosage: 3 G, 1X/DAY
     Route: 064
     Dates: start: 20170804, end: 20170811
  48. AMOXICILLIN [Suspect]
     Active Substance: AMOXICILLIN
     Dosage: 3 G, 1X/DAY (3 G, QD)
     Route: 064
     Dates: start: 20170804, end: 20170804
  49. AMOXICILLIN [Suspect]
     Active Substance: AMOXICILLIN
     Dosage: 3 G, 1X/DAY (3 G, QD)
     Route: 064
     Dates: start: 20170804, end: 20180811
  50. AMOXICILLIN [Suspect]
     Active Substance: AMOXICILLIN
     Dosage: 3 G, 1X/DAY (3 G, QD)
     Route: 064
     Dates: start: 20170804, end: 20170914
  51. AMOXICILLIN [Suspect]
     Active Substance: AMOXICILLIN
     Dosage: 1 MG, 1X/DAY
     Dates: start: 201708, end: 20180811
  52. NICOPATCH [Suspect]
     Active Substance: NICOTINE
     Indication: Ex-tobacco user
     Dosage: 7 MG, DAILY
     Route: 064
     Dates: start: 20170224, end: 20170516
  53. NICOTINE [Suspect]
     Active Substance: NICOTINE
     Indication: Ex-tobacco user
     Dosage: 7 MG, DAILY (7 MG, QD)
     Route: 064
     Dates: start: 20170224, end: 20170516
  54. GLICLAZIDE [Suspect]
     Active Substance: GLICLAZIDE
     Indication: Type 2 diabetes mellitus
     Dosage: 120 MG, DAILY (120 MG, QD)
     Route: 064
     Dates: start: 20160930, end: 20170224
  55. GLICLAZIDE [Suspect]
     Active Substance: GLICLAZIDE
     Dosage: UNK
     Route: 064
  56. TRAMADOL HYDROCHLORIDE [Suspect]
     Active Substance: TRAMADOL HYDROCHLORIDE
     Indication: Diabetic neuropathy
     Dosage: 100 MG, 1X/DAY
     Route: 064
     Dates: start: 20160930, end: 20170306
  57. TRAMADOL HYDROCHLORIDE [Suspect]
     Active Substance: TRAMADOL HYDROCHLORIDE
     Dosage: 50 MG, DAILY (50 MG, QD)
     Route: 064
     Dates: start: 20160930, end: 20170306
  58. POLYETHYLENE GLYCOL 4000 [Suspect]
     Active Substance: POLYETHYLENE GLYCOL 4000
     Indication: Type 2 diabetes mellitus
     Dosage: 120 MG, DAILY
     Route: 064
     Dates: start: 20160930, end: 20170224
  59. POLYETHYLENE GLYCOL 4000 [Suspect]
     Active Substance: POLYETHYLENE GLYCOL 4000
     Indication: Constipation
     Dosage: 1 DF, 1X/DAY
     Route: 064
     Dates: start: 20160930, end: 20170405
  60. POLYETHYLENE GLYCOL 4000 [Suspect]
     Active Substance: POLYETHYLENE GLYCOL 4000
     Dosage: UNK
     Route: 064
  61. AMITRIPTYLINE HYDROCHLORIDE [Suspect]
     Active Substance: AMITRIPTYLINE HYDROCHLORIDE
     Indication: Diabetic neuropathy
     Dosage: 2 DF, DAILY
     Route: 064
     Dates: start: 20160930
  62. FERROUS SULFATE [Suspect]
     Active Substance: FERROUS SULFATE
     Indication: Normochromic normocytic anaemia
     Dosage: 1 DF, 1X/DAY
     Route: 064
     Dates: start: 20170313
  63. FERROUS SULFATE [Suspect]
     Active Substance: FERROUS SULFATE
     Dosage: UNK
     Route: 064
  64. FERROUS SULFATE [Suspect]
     Active Substance: FERROUS SULFATE
     Indication: Normochromic normocytic anaemia
     Dosage: 1 DF, 1X/DAY (1 DF, QD)
     Route: 064
     Dates: start: 20170313, end: 20170914
  65. FERROUS SULFATE [Suspect]
     Active Substance: FERROUS SULFATE
     Dosage: 1 DF, 1X/DAY (1 DF, QD)
     Route: 064
     Dates: start: 20170313
  66. CHLORPROMAZINE HYDROCHLORIDE [Suspect]
     Active Substance: CHLORPROMAZINE HYDROCHLORIDE
     Indication: Bipolar I disorder
     Dosage: 25 MG, DAILY (25 MG, QD)
     Route: 064
     Dates: start: 20170720
  67. CHLORPROMAZINE HYDROCHLORIDE [Suspect]
     Active Substance: CHLORPROMAZINE HYDROCHLORIDE
     Indication: Hypertension
     Dosage: 25 MG, DAILY
     Route: 064
  68. CHLORPROMAZINE HYDROCHLORIDE [Suspect]
     Active Substance: CHLORPROMAZINE HYDROCHLORIDE
     Dosage: 0.5 DF, UNK (0.5 DF)
     Route: 064
  69. PROPRANOLOL HYDROCHLORIDE [Suspect]
     Active Substance: PROPRANOLOL HYDROCHLORIDE
     Indication: Hypertension
     Dosage: 80 MG, DAILY
     Route: 064
     Dates: start: 20170516
  70. PROPRANOLOL HYDROCHLORIDE [Suspect]
     Active Substance: PROPRANOLOL HYDROCHLORIDE
     Dosage: 25 MG, 1X/DAY
     Route: 064
     Dates: start: 20170720
  71. NICARDIPINE HYDROCHLORIDE [Suspect]
     Active Substance: NICARDIPINE HYDROCHLORIDE
     Indication: Hypertension
     Dosage: UNK (50MG FORME LP X2/J)
     Route: 064
     Dates: start: 20170313, end: 20170405
  72. NICARDIPINE HYDROCHLORIDE [Suspect]
     Active Substance: NICARDIPINE HYDROCHLORIDE
     Dosage: UNK
     Route: 064
     Dates: start: 20170516
  73. NICARDIPINE HYDROCHLORIDE [Suspect]
     Active Substance: NICARDIPINE HYDROCHLORIDE
     Dosage: UNK
     Route: 065
  74. POTASSIUM CHLORIDE [Suspect]
     Active Substance: POTASSIUM CHLORIDE
     Indication: Hypokalaemia
     Dosage: 3600 MG, 1X/DAY (3600 MG, QD, 1200 MG, QD (1200 MG, QD (2 TO 3 TIMES PER DAY))
     Route: 064
     Dates: start: 20170804
  75. POTASSIUM CHLORIDE [Suspect]
     Active Substance: POTASSIUM CHLORIDE
     Dosage: 1200 MG, DAILY (QD)
     Route: 064
     Dates: start: 20170804
  76. FOLIC ACID [Suspect]
     Active Substance: FOLIC ACID
     Indication: Normochromic normocytic anaemia
     Dosage: 5 MG, 1X/DAY
     Route: 064
     Dates: start: 20170313
  77. FOLIC ACID [Suspect]
     Active Substance: FOLIC ACID
     Dosage: UNK
  78. FOLIC ACID [Suspect]
     Active Substance: FOLIC ACID
     Indication: Normochromic normocytic anaemia
     Dosage: 5 MG, DAILY (5 MG, QD)
     Route: 064
     Dates: start: 20170224, end: 20170914
  79. FOLIC ACID [Suspect]
     Active Substance: FOLIC ACID
     Dosage: 5 MG, 1X/DAY (5 MG, QD)
     Route: 064
     Dates: start: 20170224, end: 20170313
  80. FOLIC ACID [Suspect]
     Active Substance: FOLIC ACID
     Dosage: 5 MG, 1X/DAY (5 MG, QD)
     Route: 064
     Dates: start: 20170313, end: 20170914
  81. LOXOPROFEN SODIUM [Suspect]
     Active Substance: LOXOPROFEN SODIUM
     Dosage: UNK
     Route: 064
     Dates: start: 20170313, end: 20170405
  82. AMITRIPTYLINE HYDROCHLORIDE [Suspect]
     Active Substance: AMITRIPTYLINE HYDROCHLORIDE
     Indication: Diabetic neuropathy
     Dosage: 2 DF, DAILY (2 DF, QD)
     Route: 064
     Dates: start: 20160930, end: 20170914
  83. LABETALOL HYDROCHLORIDE [Suspect]
     Active Substance: LABETALOL HYDROCHLORIDE
     Indication: Hypertension
     Dosage: 80 MG, DAILY
     Route: 064
     Dates: start: 20170516, end: 20170914
  84. POTASSIUM CHLORIDE [Suspect]
     Active Substance: POTASSIUM CHLORIDE
     Indication: Hypokalaemia
     Dosage: 3600 MG, DAILY
     Route: 064
     Dates: start: 20170804
  85. POTASSIUM CHLORIDE [Suspect]
     Active Substance: POTASSIUM CHLORIDE
     Dosage: 1200 MG, DAILY (1200 MG, QD, 2 TO 3 TIMES PER DAY)
     Route: 064
     Dates: start: 20170804
  86. CHLORPROMAZINE [Suspect]
     Active Substance: CHLORPROMAZINE
     Indication: Bipolar I disorder
     Dosage: 25 MG, DAILY
     Route: 064
     Dates: start: 20170720
  87. CHLORPROMAZINE [Suspect]
     Active Substance: CHLORPROMAZINE
     Dosage: 25 MG, DAILY (QD)
     Route: 064
     Dates: start: 20170720
  88. CHLORPROMAZINE [Suspect]
     Active Substance: CHLORPROMAZINE
     Dosage: 0.5 DF
     Route: 064
  89. PROPRANOLOL HYDROCHLORIDE [Suspect]
     Active Substance: PROPRANOLOL HYDROCHLORIDE
     Indication: Hypertension
     Dosage: 80 MG, 1X/DAY (80 MG, QD)
     Route: 064
     Dates: start: 20170516
  90. PROPRANOLOL HYDROCHLORIDE [Suspect]
     Active Substance: PROPRANOLOL HYDROCHLORIDE
     Dosage: 25 MG, DAILY (25 MG, QD)
     Route: 064
     Dates: start: 20170720
  91. NICARDIPINE [Suspect]
     Active Substance: NICARDIPINE
     Indication: Hypertension
     Dosage: 50 MG, 2X/DAY (50MG FORM LP X2/DAY)
     Route: 064
     Dates: start: 20170313, end: 20170405
  92. NICARDIPINE [Suspect]
     Active Substance: NICARDIPINE
     Dosage: 1 DF, UNK
     Route: 064
     Dates: start: 20170313, end: 20180405
  93. NICARDIPINE [Suspect]
     Active Substance: NICARDIPINE
     Dosage: UNK
     Route: 064
  94. NICARDIPINE [Suspect]
     Active Substance: NICARDIPINE
     Dosage: 100 MG, QD
     Route: 064
     Dates: start: 20180405
  95. NICARDIPINE [Suspect]
     Active Substance: NICARDIPINE
     Dosage: 50 MG, 2X/DAY (50 MG, BID)
     Route: 064
     Dates: start: 20170405, end: 20170914
  96. NICARDIPINE [Suspect]
     Active Substance: NICARDIPINE
     Dosage: UNK
     Route: 064
  97. NICARDIPINE [Suspect]
     Active Substance: NICARDIPINE
     Dosage: 50 MG
     Route: 064
     Dates: start: 20170313, end: 20170405
  98. POLYETHYLENE GLYCOL 4000 [Suspect]
     Active Substance: POLYETHYLENE GLYCOL 4000
     Indication: Constipation
     Dosage: 1 DF, DAILY (1 DF, QD) (BIOGARAN)
     Route: 064
     Dates: start: 20160930, end: 20170405
  99. POLYETHYLENE GLYCOL 4000 [Suspect]
     Active Substance: POLYETHYLENE GLYCOL 4000
     Dosage: 120 MG, DAILY (120 DF, QD)
     Route: 064
     Dates: start: 20160930, end: 20170224

REACTIONS (5)
  - Maternal exposure during pregnancy [Unknown]
  - Neutropenia neonatal [Not Recovered/Not Resolved]
  - Premature baby [Not Recovered/Not Resolved]
  - Foetal disorder [Unknown]
  - Low birth weight baby [Unknown]

NARRATIVE: CASE EVENT DATE: 20170804
